FAERS Safety Report 18223204 (Version 4)
Quarter: 2020Q4

REPORT INFORMATION
  Report Type: Spontaneous
  Country: IL (occurrence: IL)
  Receive Date: 20200902
  Receipt Date: 20201030
  Transmission Date: 20210113
  Serious: Yes (Death, Other)
  Sender: FDA-Public Use
  Company Number: NVSC2020IL240895

PATIENT
  Age: 66 Year
  Sex: Female

DRUGS (23)
  1. CALCILESS [Concomitant]
     Indication: PRODUCT USED FOR UNKNOWN INDICATION
     Dosage: 1 DF (1 X 3 PER DAY)
     Route: 048
  2. HYDROCORTISONE. [Concomitant]
     Active Substance: HYDROCORTISONE
     Indication: DYSPNOEA
     Dosage: 100 MG (1 X 6 PER DAY 1 MONTH)
     Route: 042
  3. MEKINIST [Suspect]
     Active Substance: TRAMETINIB DIMETHYL SULFOXIDE
     Indication: PRODUCT USED FOR UNKNOWN INDICATION
     Dosage: UNK
     Route: 065
     Dates: start: 20200823
  4. ZYPREXA [Concomitant]
     Active Substance: OLANZAPINE
     Indication: NAUSEA
     Dosage: 5 MG (1 X 2 PER)
     Route: 048
  5. ZYPREXA [Concomitant]
     Active Substance: OLANZAPINE
     Indication: AGITATION
  6. EUCREAS [Concomitant]
     Active Substance: METFORMIN HYDROCHLORIDE\VILDAGLIPTIN
     Indication: PRODUCT USED FOR UNKNOWN INDICATION
     Dosage: 50 MG/1000 MG (1 TAB 1 X 2 PER DAY)
     Route: 048
  7. LORIVAN [Concomitant]
     Active Substance: LORAZEPAM
     Indication: NAUSEA
     Dosage: 1 MG (1 X 2 PER)
     Route: 048
  8. NEXIUM [Concomitant]
     Active Substance: ESOMEPRAZOLE MAGNESIUM
     Indication: PRODUCT USED FOR UNKNOWN INDICATION
     Dosage: 40 MG (1 X 1 PER DAY)
     Route: 042
  9. AEROVENT [Concomitant]
     Indication: DYSPNOEA
     Dosage: 1 PUFF, 1 X 3 PER DAY
     Route: 055
  10. MIRO [Concomitant]
     Indication: PRODUCT USED FOR UNKNOWN INDICATION
     Dosage: 30 MG (1 X 1 PER DAY)
     Route: 065
  11. CLEXANE [Concomitant]
     Active Substance: ENOXAPARIN SODIUM
     Indication: PRODUCT USED FOR UNKNOWN INDICATION
     Dosage: 40 MG (1 X 1 PER DAY)
     Route: 058
  12. MORPHINE [Concomitant]
     Active Substance: MORPHINE
     Indication: DYSPNOEA
     Dosage: 5 MG (6 TIMES A DAY, PRESCRIBED FOR 10 DAYS)
     Route: 065
  13. RESPRIM [Concomitant]
     Active Substance: SULFAMETHOXAZOLE\TRIMETHOPRIM
     Indication: ANTIBIOTIC PROPHYLAXIS
     Dosage: 1 DF (1 X 3 PER WEEK)
     Route: 048
  14. LORIVAN [Concomitant]
     Active Substance: LORAZEPAM
     Indication: AGITATION
  15. VABEN [Concomitant]
     Active Substance: OXAZEPAM
     Indication: PRODUCT USED FOR UNKNOWN INDICATION
     Dosage: UNK (1 X 1 PER)
     Route: 065
  16. PRAMIN [Concomitant]
     Indication: NAUSEA
     Dosage: 10 MG (1 X 3 PER DAY)
     Route: 042
  17. NEOBLOC [Concomitant]
     Indication: PRODUCT USED FOR UNKNOWN INDICATION
     Dosage: 25 MG (1 X 2 PER DAY)
     Route: 048
  18. REKOD [Concomitant]
     Indication: PRODUCT USED FOR UNKNOWN INDICATION
     Dosage: 20 MG
     Route: 048
  19. GLUCERNA [Concomitant]
     Active Substance: AMINO ACIDS\DEXTROSE\ELECTROLYTES NOS\SOYBEAN OIL\VITAMINS
     Indication: PRODUCT USED FOR UNKNOWN INDICATION
     Dosage: 220 ML (1 X 1 PER DAY)
     Route: 065
  20. FOSTER [Concomitant]
     Active Substance: BECLOMETHASONE\FORMOTEROL
     Indication: DYSPNOEA
     Dosage: 1 DF
     Route: 055
  21. IMODIUM [Concomitant]
     Active Substance: LOPERAMIDE HYDROCHLORIDE
     Indication: PRODUCT USED FOR UNKNOWN INDICATION
     Dosage: 2 MG (1 X 8 PER DAY)
     Route: 048
  22. TOUJEO [Concomitant]
     Active Substance: INSULIN GLARGINE
     Indication: PRODUCT USED FOR UNKNOWN INDICATION
     Dosage: 30 UNITS 1 X 1 PER DAY (A CONCENTRATED PREPARATION ? DO NOT DRAW INTO AN INSULIN SYRINGE)
     Route: 058
  23. DEXACORT [Concomitant]
     Active Substance: DEXAMETHASONE SODIUM PHOSPHATE
     Indication: PRODUCT USED FOR UNKNOWN INDICATION
     Dosage: 6 MG (1 X 1 PER DAY) (AMP)
     Route: 042

REACTIONS (37)
  - Type 2 diabetes mellitus [Unknown]
  - Dyslipidaemia [Unknown]
  - Lymphocyte count decreased [Unknown]
  - Blood magnesium decreased [Unknown]
  - C-reactive protein increased [Unknown]
  - Blood alkaline phosphatase increased [Unknown]
  - Aspartate aminotransferase increased [Unknown]
  - Platelet count decreased [Unknown]
  - Blood cholesterol increased [Unknown]
  - Neutrophil count increased [Unknown]
  - Alanine aminotransferase increased [Unknown]
  - White blood cell count decreased [Unknown]
  - Red cell distribution width increased [Unknown]
  - Blood potassium decreased [Unknown]
  - Eating disorder [Unknown]
  - Asthenia [Unknown]
  - Thyroid mass [Unknown]
  - Blood glucose increased [Unknown]
  - Blood albumin decreased [Unknown]
  - PCO2 decreased [Unknown]
  - Blood bicarbonate decreased [Unknown]
  - Lymphocyte count increased [Unknown]
  - Blood bilirubin increased [Unknown]
  - Amylase decreased [Unknown]
  - Blood lactate dehydrogenase increased [Unknown]
  - Blood phosphorus decreased [Unknown]
  - Blood triglycerides increased [Unknown]
  - Visual impairment [Unknown]
  - General physical health deterioration [Fatal]
  - Globulins decreased [Unknown]
  - Blood creatine phosphokinase decreased [Unknown]
  - Gamma-glutamyltransferase increased [Unknown]
  - Protein total decreased [Unknown]
  - PO2 decreased [Unknown]
  - Oxygen saturation [Unknown]
  - Vomiting [Unknown]
  - Head discomfort [Unknown]
